FAERS Safety Report 15227462 (Version 2)
Quarter: 2018Q3

REPORT INFORMATION
  Report Type: Spontaneous
  Country: US (occurrence: US)
  Receive Date: 20180801
  Receipt Date: 20180803
  Transmission Date: 20181010
  Serious: No
  Sender: FDA-Public Use
  Company Number: US-SHIRE-US201829049

PATIENT
  Age: 88 Year
  Sex: Female
  Weight: 68.27 kg

DRUGS (4)
  1. XIIDRA [Suspect]
     Active Substance: LIFITEGRAST
     Indication: DRY EYE
     Dosage: UNK UNK, 2X/DAY:BID
     Route: 047
     Dates: start: 2018, end: 20180720
  2. BABY ASPIRIN [Concomitant]
     Active Substance: ASPIRIN
     Indication: PRODUCT USED FOR UNKNOWN INDICATION
  3. XIIDRA [Suspect]
     Active Substance: LIFITEGRAST
     Indication: SUPERFICIAL INJURY OF EYE
  4. XIIDRA [Suspect]
     Active Substance: LIFITEGRAST
     Indication: DISCOMFORT
     Dosage: 1 GTT, 2X/DAY:BID
     Route: 047
     Dates: start: 201806, end: 201807

REACTIONS (3)
  - Instillation site reaction [Recovered/Resolved]
  - Drug ineffective [Not Recovered/Not Resolved]
  - Vision blurred [Recovered/Resolved]

NARRATIVE: CASE EVENT DATE: 201807
